FAERS Safety Report 7287448-5 (Version None)
Quarter: 2011Q1

REPORT INFORMATION
  Report Type: 
  Country: None (occurrence: None)
  Receive Date: 20110211
  Receipt Date: 20110203
  Transmission Date: 20110831
  Serious: Yes (Other)
  Sender: FDA-Public Use
  Company Number: CA-PFIZER INC-2011025141

PATIENT
  Age: 14 Year
  Sex: Female

DRUGS (1)
  1. CORTEF [Suspect]
     Dosage: 7.5 MG, 2X/DAY
     Dates: start: 20030101

REACTIONS (4)
  - VISUAL ACUITY REDUCED [None]
  - DIPLOPIA [None]
  - HEADACHE [None]
  - VISION BLURRED [None]
